FAERS Safety Report 5084259-6 (Version None)
Quarter: 2006Q3

REPORT INFORMATION
  Report Type: 
  Country: None (occurrence: None)
  Receive Date: 20060821
  Receipt Date: 20060807
  Transmission Date: 20061208
  Serious: Yes (Hospitalization)
  Sender: FDA-Public Use
  Company Number: US-AMGEN-STX189295

PATIENT
  Sex: Female

DRUGS (3)
  1. ENBREL [Suspect]
     Indication: RHEUMATOID ARTHRITIS
     Route: 058
     Dates: start: 20060331
  2. METHOTREXATE [Concomitant]
     Route: 048
     Dates: start: 20051201
  3. PLAQUENIL [Concomitant]
     Route: 048
     Dates: start: 20060201

REACTIONS (2)
  - HIP ARTHROPLASTY [None]
  - OEDEMA PERIPHERAL [None]
